FAERS Safety Report 8157712-6 (Version None)
Quarter: 2012Q1

REPORT INFORMATION
  Report Type: 
  Country: None (occurrence: None)
  Receive Date: 20120222
  Receipt Date: 20120217
  Transmission Date: 20120608
  Serious: Yes (Hospitalization)
  Sender: FDA-Public Use
  Company Number: US-PFIZER INC-2012025423

PATIENT
  Sex: Female
  Weight: 46.712 kg

DRUGS (4)
  1. CHANTIX [Suspect]
     Dosage: UNK
     Dates: start: 20060101, end: 20060101
  2. LIPITOR [Suspect]
     Indication: BLOOD CHOLESTEROL INCREASED
     Dosage: UNK
     Route: 048
     Dates: start: 20080101
  3. TEMAZEPAM [Concomitant]
     Indication: SLEEP DISORDER
     Dosage: 20 MG, UNK
  4. ACTONEL WITH CALCIUM (COPACKAGED) [Concomitant]
     Dosage: UNK

REACTIONS (1)
  - FOOT OPERATION [None]
